FAERS Safety Report 8502917-5 (Version None)
Quarter: 2012Q3

REPORT INFORMATION
  Report Type: 
  Country: None (occurrence: None)
  Receive Date: 20120711
  Receipt Date: 20120709
  Transmission Date: 20120928
  Serious: Yes (Hospitalization, Other)
  Sender: FDA-Public Use
  Company Number: US-PFIZER INC-2012137679

PATIENT
  Sex: Female

DRUGS (3)
  1. EFFEXOR XR [Suspect]
     Indication: DEPRESSION
     Dosage: UNK
  2. VENLAFAXINE HCL [Suspect]
     Indication: DEPRESSION
     Dosage: 75 MG, UNK
  3. CLONAZEPAM [Suspect]
     Dosage: UNK

REACTIONS (14)
  - DELUSION [None]
  - WITHDRAWAL SYNDROME [None]
  - MUSCLE TIGHTNESS [None]
  - TOOTH FRACTURE [None]
  - NAUSEA [None]
  - ABNORMAL DREAMS [None]
  - VERTIGO [None]
  - IMPAIRED DRIVING ABILITY [None]
  - CONFUSIONAL STATE [None]
  - EAR DISORDER [None]
  - INCOHERENT [None]
  - FATIGUE [None]
  - VOMITING [None]
  - HEAD DISCOMFORT [None]
